FAERS Safety Report 5368223-5 (Version None)
Quarter: 2007Q2

REPORT INFORMATION
  Report Type: 
  Country: None (occurrence: None)
  Receive Date: 20070625
  Receipt Date: 20070620
  Transmission Date: 20071010
  Serious: Yes (Life-Threatening, Hospitalization)
  Sender: FDA-Public Use
  Company Number: PHNU2007DE01149

PATIENT
  Age: 63 Year
  Sex: Female
  Weight: 74 kg

DRUGS (3)
  1. SANDOSTATIN LAR [Suspect]
     Indication: CARCINOID SYNDROME
     Dosage: 10 MG MONTHLY
     Route: 030
     Dates: start: 20070403
  2. SANDOSTATIN LAR [Suspect]
     Dosage: 10 MG MONTHLY
     Route: 030
     Dates: start: 20070130, end: 20070312
  3. SANDOSTATIN [Suspect]
     Indication: CARCINOID SYNDROME
     Dosage: 500 UG, TID
     Route: 058
     Dates: start: 20070130, end: 20070312

REACTIONS (4)
  - CIRCULATORY COLLAPSE [None]
  - FALL [None]
  - ILEUS [None]
  - SINUS BRADYCARDIA [None]
